FAERS Safety Report 9796071 (Version 4)
Quarter: 2014Q2

REPORT INFORMATION
  Report Type: Spontaneous
  Country: US (occurrence: US)
  Receive Date: 20140103
  Receipt Date: 20140416
  Transmission Date: 20141212
  Serious: Yes (Death, Other)
  Sender: FDA-Public Use
  Company Number: US-BRISTOL-MYERS SQUIBB COMPANY-19560127

PATIENT
  Age: 78 Year
  Sex: Male
  Weight: 77.1 kg

DRUGS (11)
  1. ELIQUIS [Suspect]
     Dosage: 5MG: OD
     Dates: start: 20130322
  2. PROAIR HFA [Concomitant]
     Dosage: INHALER
  3. METOPROLOL [Concomitant]
  4. ISOSORBIDE MONONITRATE [Concomitant]
  5. ZYRTEC [Concomitant]
  6. PANTOPRAZOLE [Concomitant]
  7. MOBIC [Concomitant]
  8. PRAVASTATIN SODIUM [Concomitant]
  9. HYTRIN [Concomitant]
  10. POTASSIUM [Concomitant]
  11. LASIX [Concomitant]

REACTIONS (10)
  - Death [Fatal]
  - Cardiac failure congestive [Unknown]
  - Chronic obstructive pulmonary disease [Unknown]
  - Aortic stenosis [Unknown]
  - Hypoxia [Unknown]
  - Confusional state [Unknown]
  - Hallucination [Unknown]
  - Urinary incontinence [Unknown]
  - Contusion [Not Recovered/Not Resolved]
  - Weight decreased [Unknown]
